FAERS Safety Report 23201491 (Version 1)
Quarter: 2023Q4

REPORT INFORMATION
  Report Type: Report from Study
  Country: KR (occurrence: KR)
  Receive Date: 20231118
  Receipt Date: 20231118
  Transmission Date: 20240109
  Serious: Yes (Other)
  Sender: FDA-Public Use
  Company Number: KR-002147023-NVSC2023KR199131

PATIENT
  Age: 41 Year
  Sex: Male
  Weight: 82.8 kg

DRUGS (2)
  1. ARCAPTA NEOHALER [Suspect]
     Active Substance: INDACATEROL MALEATE
     Indication: Asthma
     Dosage: 150/ 320 UG, QD
     Dates: start: 20221115
  2. REBAMIPIDE [Concomitant]
     Active Substance: REBAMIPIDE
     Indication: Prophylaxis
     Dosage: 1 DOSAGE FORM, BID (SR)
     Route: 048
     Dates: start: 20230222, end: 20230224

REACTIONS (1)
  - Neuroendocrine tumour of the rectum [Not Recovered/Not Resolved]

NARRATIVE: CASE EVENT DATE: 20230222
